FAERS Safety Report 9074117 (Version 1)
Quarter: 2013Q1

REPORT INFORMATION
  Report Type: Spontaneous
  Country: US (occurrence: US)
  Receive Date: 20130129
  Receipt Date: 20130129
  Transmission Date: 20140127
  Serious: Yes (Other)
  Sender: FDA-Public Use
  Company Number: US-ROCHE-1046937

PATIENT
  Sex: Male
  Weight: 79.45 kg

DRUGS (3)
  1. ACCUTANE [Suspect]
     Indication: ACNE
     Route: 065
     Dates: start: 1990
  2. ACCUTANE [Suspect]
     Route: 065
     Dates: start: 1992
  3. ACCUTANE [Suspect]
     Route: 065
     Dates: start: 1998, end: 1999

REACTIONS (4)
  - Crohn^s disease [Unknown]
  - Intestinal obstruction [Unknown]
  - Inflammatory bowel disease [Unknown]
  - Irritable bowel syndrome [Unknown]
